FAERS Safety Report 4911384-X (Version None)
Quarter: 2006Q1

REPORT INFORMATION
  Report Type: 
  Country: None (occurrence: None)
  Receive Date: 20060209
  Receipt Date: 20060117
  Transmission Date: 20060701
  Serious: Yes (Other)
  Sender: FDA-Public Use
  Company Number: 2006MP000092

PATIENT
  Age: 17 Year
  Sex: Male

DRUGS (3)
  1. AGGRASTAT [Suspect]
     Indication: MYOCARDIAL ISCHAEMIA
     Dosage: IV
     Route: 042
  2. EPINEPHRINE [Concomitant]
  3. LEVOSIMENDAN [Concomitant]

REACTIONS (11)
  - ACTIVATED PARTIAL THROMBOPLASTIN TIME PROLONGED [None]
  - AKINESIA [None]
  - CARDIAC FAILURE [None]
  - CARDIAC TAMPONADE [None]
  - CARDIOGENIC SHOCK [None]
  - EJECTION FRACTION DECREASED [None]
  - INTERNATIONAL NORMALISED RATIO DECREASED [None]
  - PLATELET COUNT DECREASED [None]
  - POST PROCEDURAL HAEMORRHAGE [None]
  - THERAPY NON-RESPONDER [None]
  - VENTRICULAR DYSFUNCTION [None]
